FAERS Safety Report 8224572-4 (Version None)
Quarter: 2012Q1

REPORT INFORMATION
  Report Type: 
  Country: None (occurrence: None)
  Receive Date: 20120321
  Receipt Date: 20120309
  Transmission Date: 20120608
  Serious: Yes (Hospitalization)
  Sender: FDA-Public Use
  Company Number: US-ELI_LILLY_AND_COMPANY-US201203003454

PATIENT
  Age: 50 Year
  Sex: Female

DRUGS (6)
  1. HYDROCHLOROTHIAZIDE [Concomitant]
     Dosage: UNK, UNKNOWN
  2. AMITRIPTYLINE HCL [Concomitant]
     Dosage: UNK, UNKNOWN
  3. CYMBALTA [Suspect]
     Indication: ANXIETY
     Dosage: 120 MG, QD
     Dates: start: 20090301
  4. MELOXICAM [Concomitant]
     Dosage: UNK, UNKNOWN
  5. CYMBALTA [Suspect]
     Dosage: 60 MG, QOD
  6. LISINOPRIL [Concomitant]
     Dosage: UNK, UNKNOWN

REACTIONS (7)
  - DRUG WITHDRAWAL HEADACHE [None]
  - INAPPROPRIATE SCHEDULE OF DRUG ADMINISTRATION [None]
  - SWELLING [None]
  - FATIGUE [None]
  - FIBROMYALGIA [None]
  - DRUG WITHDRAWAL SYNDROME [None]
  - ANXIETY [None]
